FAERS Safety Report 9727467 (Version 2)
Quarter: 2013Q4

REPORT INFORMATION
  Report Type: Spontaneous
  Country: SE (occurrence: None)
  Receive Date: 20131127
  Receipt Date: 20131204
  Transmission Date: 20140711
  Serious: Yes (Other)
  Sender: FDA-Public Use
  Company Number: AUR-APL-2013-09866

PATIENT
  Age: 60 Year
  Sex: Female

DRUGS (7)
  1. RAMIPRIL (RAMIPRIL) [Suspect]
     Indication: PRODUCT USED FOR UNKNOWN INDICATION
     Route: 048
  2. METOPROLOL (METOPROLOL) [Suspect]
     Indication: PRODUCT USED FOR UNKNOWN INDICATION
     Route: 048
  3. TICAGRELOR [Suspect]
     Indication: PRODUCT USED FOR UNKNOWN INDICATION
     Route: 048
  4. DAIVOBET (DAIVOBET) [Concomitant]
  5. LEVAXIN (LEVOTHYROXINE SODIUM) [Concomitant]
  6. ATORVASTATIN (ATORVASTATIN) [Concomitant]
  7. TROMBYL (ACETYLSALICYLIC ACID) [Concomitant]

REACTIONS (3)
  - Pruritus [None]
  - Peripheral ischaemia [None]
  - Urticaria [None]
